FAERS Safety Report 8947889 (Version 1)
Quarter: 2012Q4

REPORT INFORMATION
  Report Type: Spontaneous
  Country: US (occurrence: None)
  Receive Date: 20121127
  Receipt Date: 20121127
  Transmission Date: 20130627
  Serious: Yes (Disabling, Other)
  Sender: FDA-Public Use
  Company Number: ACO_32132_2012

PATIENT
  Age: 67 Year
  Sex: Female
  Weight: 49.9 kg

DRUGS (17)
  1. AMPYRA (DALFAMPRIDINE) TABLET, 10MG [Suspect]
     Indication: GAIT DISTURBANCE
     Route: 048
     Dates: start: 201208, end: 20121110
  2. CYMBALTA (DULOXETINE HYDROCHLORIDE) [Concomitant]
  3. NEURONTIN (GABAPENTIN) [Concomitant]
  4. NORTRIPTYLINE HCL (NORTRIPTYLINE HYDROCHLORIDE) [Concomitant]
  5. ADVAIR (FLUTICASONE PROPIONATE, SALMETEROL XINAFOATE) [Concomitant]
  6. ALPRAZOLAM [Concomitant]
  7. ESTRACE (ESTRADIOL) [Concomitant]
  8. LEXAPRO (ESCITALOPRAM OXALATE) [Concomitant]
  9. SPIRIVA (TIOTROPIUM BROMIDE) [Concomitant]
  10. PROVIGIL (MODAFINIL) [Concomitant]
  11. VYTORIN (EZETIMIBE, SIMVASTATIN) [Concomitant]
  12. OXYCONTIN (OXYCODONE HYDROCHLORIDE) [Concomitant]
  13. HYDROCODONE (HYDROCODONE BITARTRATE) [Concomitant]
  14. FENTANYL [Concomitant]
  15. XANAX (ALPRAZOLAM) [Concomitant]
  16. ANALGESICS [Concomitant]
  17. OXYCODONE HCL (OXYCODONE HYDROCHLORIDE) [Concomitant]

REACTIONS (15)
  - Dysstasia [None]
  - Gastrooesophageal reflux disease [None]
  - Hypoaesthesia [None]
  - Arthralgia [None]
  - Abdominal pain [None]
  - Muscle strain [None]
  - Sensation of pressure [None]
  - Social avoidant behaviour [None]
  - Anxiety [None]
  - Feeling of body temperature change [None]
  - Peripheral coldness [None]
  - Muscle tightness [None]
  - Pain in extremity [None]
  - Malaise [None]
  - Adverse drug reaction [None]
